FAERS Safety Report 7521894-7 (Version None)
Quarter: 2011Q2

REPORT INFORMATION
  Report Type: 
  Country: None (occurrence: None)
  Receive Date: 20110603
  Receipt Date: 20110519
  Transmission Date: 20111010
  Serious: Yes (Other)
  Sender: FDA-Public Use
  Company Number: GB-RANBAXY-2009US-29073

PATIENT

DRUGS (2)
  1. FENOFIBRATE [Suspect]
     Indication: LIPIDS ABNORMAL
     Dosage: 400 MG, ATYPICAL DOSE
     Route: 065
  2. PRAVASTATIN [Interacting]
     Indication: LIPIDS ABNORMAL
     Dosage: 40 MG, UNK
     Route: 065

REACTIONS (2)
  - DRUG INTERACTION [None]
  - HIGH DENSITY LIPOPROTEIN DECREASED [None]
